FAERS Safety Report 8104529-4 (Version None)
Quarter: 2012Q1

REPORT INFORMATION
  Report Type: 
  Country: None (occurrence: None)
  Receive Date: 20120201
  Receipt Date: 20120118
  Transmission Date: 20120608
  Serious: Yes (Life-Threatening, Hospitalization)
  Sender: FDA-Public Use
  Company Number: JP-MERCK-1105USA01236

PATIENT
  Age: 69 Year
  Sex: Female

DRUGS (11)
  1. PREDNISOLONE [Concomitant]
     Indication: ASTHMA
     Route: 048
     Dates: start: 20060417, end: 20060509
  2. ZYRTEC [Suspect]
     Indication: HYPERSENSITIVITY
     Route: 048
     Dates: start: 20060508, end: 20060510
  3. SINGULAIR [Suspect]
     Indication: ASTHMA
     Dosage: DOSING/FRENQUENCY UNKNOWN
     Route: 048
     Dates: start: 20060417, end: 20060510
  4. CODEINE PHOSPHATE [Concomitant]
     Indication: COUGH
     Dosage: DAILY DOSAGE UNKNOWN
     Route: 048
     Dates: start: 20060424, end: 20060430
  5. GASLON N [Concomitant]
     Indication: GASTROINTESTINAL DISORDER
     Dosage: DAILY DOSAGE UNKNONW
     Route: 048
     Dates: start: 20060417, end: 20060430
  6. PULMICORT-100 [Concomitant]
     Indication: ASTHMA
     Route: 055
     Dates: start: 20060417, end: 20060510
  7. NOVAMIN (PROCHLORPERAZINE MESYLATE) [Concomitant]
     Indication: PROPHYLAXIS OF NAUSEA AND VOMITING
     Route: 048
     Dates: start: 20060424, end: 20060430
  8. MAGNESIUM SULFATE [Concomitant]
     Indication: CONSTIPATION PROPHYLAXIS
     Dosage: DAILY DOSE UNKNOWN
     Route: 048
     Dates: start: 20060424, end: 20060430
  9. MYSER [Concomitant]
     Indication: DERMATITIS
     Dosage: DAILY DOSAGE UNKNOWN
     Route: 061
     Dates: start: 20060508, end: 20060510
  10. CLARITHROMYCIN [Concomitant]
     Indication: ASTHMA
     Route: 065
  11. PREDNISOLONE [Concomitant]
     Route: 065
     Dates: start: 20060513

REACTIONS (2)
  - STEVENS-JOHNSON SYNDROME [None]
  - TOXIC EPIDERMAL NECROLYSIS [None]
